FAERS Safety Report 8087591-7 (Version None)
Quarter: 2012Q1

REPORT INFORMATION
  Report Type: 
  Country: None (occurrence: None)
  Receive Date: 20120128
  Receipt Date: 20110525
  Transmission Date: 20120608
  Serious: No
  Sender: FDA-Public Use
  Company Number: US-ABBOTT-11P-163-0728560-00

PATIENT
  Age: 57 Year
  Sex: Female

DRUGS (6)
  1. OXYCODONE HCL [Concomitant]
     Indication: ARTHRALGIA
  2. HUMIRA [Suspect]
     Indication: PSORIASIS
     Dates: start: 20050101
  3. HUMIRA [Suspect]
     Indication: PSORIATIC ARTHROPATHY
  4. ATENOLOL [Concomitant]
     Indication: HYPERTENSION
     Dosage: 150MG DAILY
  5. HYDROCHLOROTHIAZIDE [Concomitant]
     Indication: HYPERTENSION
     Dosage: 25MG DAILY
  6. LISINOPRIL [Concomitant]
     Indication: HYPERTENSION
     Dosage: 20MG DAILY

REACTIONS (2)
  - HYPERTENSION [None]
  - INJECTION SITE PAIN [None]
